FAERS Safety Report 9146331 (Version 3)
Quarter: 2013Q1

REPORT INFORMATION
  Report Type: Report from Study
  Country: JP (occurrence: JP)
  Receive Date: 20130307
  Receipt Date: 20130319
  Transmission Date: 20140127
  Serious: Yes (Hospitalization)
  Sender: FDA-Public Use
  Company Number: JP-SANOFI-AVENTIS-2013SA021110

PATIENT
  Age: 49 Year
  Sex: Male
  Weight: 82.5 kg

DRUGS (21)
  1. HYDROXYCHLOROQUINE SULFATE [Suspect]
     Indication: PRODUCT USED FOR UNKNOWN INDICATION
     Route: 048
     Dates: start: 20120630, end: 20120731
  2. HYDROXYCHLOROQUINE SULFATE [Suspect]
     Indication: PRODUCT USED FOR UNKNOWN INDICATION
     Route: 048
     Dates: start: 20120801, end: 20120828
  3. HYDROXYCHLOROQUINE SULFATE [Suspect]
     Indication: PRODUCT USED FOR UNKNOWN INDICATION
     Route: 048
     Dates: start: 20120829, end: 20120925
  4. HYDROXYCHLOROQUINE SULFATE [Suspect]
     Indication: PRODUCT USED FOR UNKNOWN INDICATION
     Route: 048
     Dates: start: 20120926, end: 20121015
  5. HYDROXYCHLOROQUINE SULFATE [Suspect]
     Indication: PRODUCT USED FOR UNKNOWN INDICATION
     Route: 048
     Dates: start: 20121016, end: 20121120
  6. HYDROXYCHLOROQUINE SULFATE [Suspect]
     Indication: PRODUCT USED FOR UNKNOWN INDICATION
     Route: 048
     Dates: start: 20121121, end: 20121218
  7. HYDROXYCHLOROQUINE SULFATE [Suspect]
     Indication: PRODUCT USED FOR UNKNOWN INDICATION
     Route: 048
     Dates: start: 20121219, end: 20130115
  8. HYDROXYCHLOROQUINE SULFATE [Suspect]
     Indication: PRODUCT USED FOR UNKNOWN INDICATION
     Route: 048
     Dates: start: 20130116, end: 20130212
  9. MEDROL [Concomitant]
     Indication: DRUG THERAPY
     Route: 048
     Dates: start: 20111109
  10. LORFENAMIN [Concomitant]
     Indication: DRUG THERAPY
     Route: 048
     Dates: start: 20120629
  11. REBAMIPIDE [Concomitant]
     Indication: PROPHYLAXIS
     Route: 048
     Dates: start: 20120629
  12. ALLELOCK [Concomitant]
     Indication: DRUG THERAPY
     Route: 048
     Dates: start: 20120828, end: 20120910
  13. ALLELOCK [Concomitant]
     Indication: DRUG THERAPY
     Route: 048
     Dates: start: 20120911, end: 20121105
  14. ALLELOCK [Concomitant]
     Indication: DRUG THERAPY
     Route: 048
     Dates: start: 20130223
  15. GEBEN [Concomitant]
     Indication: DRUG THERAPY
     Route: 062
     Dates: start: 20121218
  16. ADOFEED [Concomitant]
     Indication: DRUG THERAPY
     Route: 062
     Dates: start: 2008
  17. GENTAMICIN [Concomitant]
     Indication: DRUG THERAPY
     Route: 062
     Dates: start: 20130110, end: 20130110
  18. GENTAMICIN [Concomitant]
     Indication: DRUG THERAPY
     Dosage: 1-2 TIMES/DAY, APPROPRIATE DOSE
     Dates: start: 20130218
  19. LIDOCAINE [Concomitant]
     Indication: ADJUVANT THERAPY
     Route: 048
     Dates: start: 20130110, end: 20130110
  20. LIDOCAINE [Concomitant]
     Indication: ADJUVANT THERAPY
     Route: 061
     Dates: start: 20130110, end: 20130110
  21. ALL OTHER THERAPEUTIC PRODUCTS [Concomitant]
     Indication: ADJUVANT THERAPY
     Route: 048
     Dates: start: 20130110, end: 20130110

REACTIONS (1)
  - Cellulitis [Recovering/Resolving]
